FAERS Safety Report 12980345 (Version 2)
Quarter: 2017Q3

REPORT INFORMATION
  Report Type: Report from Study
  Country: US (occurrence: US)
  Receive Date: 20161128
  Receipt Date: 20170719
  Transmission Date: 20171127
  Serious: Yes (Death)
  Sender: FDA-Public Use
  Company Number: US-JNJFOC-20161128490

PATIENT
  Age: 71 Year
  Sex: Female

DRUGS (11)
  1. MYRBETRIQ [Concomitant]
     Active Substance: MIRABEGRON
  2. FENOFIBRATE. [Concomitant]
     Active Substance: FENOFIBRATE
  3. CENTRUM SILVER [Concomitant]
     Active Substance: MINERALS\VITAMINS
  4. RANITIDINE. [Concomitant]
     Active Substance: RANITIDINE
  5. SIMVASTATIN. [Concomitant]
     Active Substance: SIMVASTATIN
  6. HYDRALAZINE HCL [Concomitant]
     Active Substance: HYDRALAZINE HYDROCHLORIDE
  7. IMBRUVICA [Suspect]
     Active Substance: IBRUTINIB
     Indication: CHRONIC LYMPHOCYTIC LEUKAEMIA
     Route: 048
     Dates: start: 20161022
  8. PREDNISONE. [Concomitant]
     Active Substance: PREDNISONE
  9. COUMADIN [Concomitant]
     Active Substance: WARFARIN SODIUM
  10. KETOCONAZOLE. [Concomitant]
     Active Substance: KETOCONAZOLE
  11. OSCAL [Concomitant]
     Active Substance: CALCIUM CARBONATE

REACTIONS (2)
  - Cerebral haemorrhage [Fatal]
  - Product packaging quantity issue [Unknown]

NARRATIVE: CASE EVENT DATE: 20161120
